FAERS Safety Report 25894297 (Version 1)
Quarter: 2025Q4

REPORT INFORMATION
  Report Type: Spontaneous
  Country: US (occurrence: US)
  Receive Date: 20251008
  Receipt Date: 20251008
  Transmission Date: 20260117
  Serious: Yes (Other)
  Sender: ABBVIE
  Company Number: US-ABBVIE-6490371

PATIENT
  Sex: Female

DRUGS (1)
  1. BOTOX COSMETIC [Suspect]
     Active Substance: ONABOTULINUMTOXINA
     Indication: Muscle hypertrophy
     Dosage: TIME INTERVAL: AS NECESSARY: 20 UNIT
     Route: 065
     Dates: start: 202208, end: 202208

REACTIONS (5)
  - Dysphagia [Unknown]
  - Suspected counterfeit product [Unknown]
  - Weight decreased [Unknown]
  - Product use in unapproved indication [Unknown]
  - Paralysis [Unknown]
